FAERS Safety Report 6179515-4 (Version None)
Quarter: 2009Q2

REPORT INFORMATION
  Report Type: 
  Country: None (occurrence: None)
  Receive Date: 20090505
  Receipt Date: 20090423
  Transmission Date: 20091009
  Serious: Yes (Hospitalization, Other)
  Sender: FDA-Public Use
  Company Number: DE-PFIZER INC-2008072102

PATIENT

DRUGS (15)
  1. BLINDED *PLACEBO [Suspect]
     Indication: COLORECTAL CANCER METASTATIC
     Route: 048
     Dates: start: 20080731
  2. BLINDED SUNITINIB MALATE [Suspect]
     Indication: COLORECTAL CANCER METASTATIC
     Route: 048
     Dates: start: 20080731
  3. IRINOTECAN HYDROCHLORIDE [Suspect]
     Indication: COLORECTAL CANCER METASTATIC
     Dosage: 1 EVERY 2 WEEKS
     Route: 042
     Dates: start: 20080731
  4. FLUOROURACIL [Suspect]
     Dosage: 1 EVERY 2 WEEKS725 MG BOLUS
     Route: 042
     Dates: start: 20080731
  5. FLUOROURACIL [Suspect]
     Dosage: 1 EVERY 2 WEEKS
     Route: 042
     Dates: start: 20080731
  6. CALCIUM FOLINATE [Suspect]
     Dosage: 1 EVERY 2 WEEKS
     Route: 042
     Dates: start: 20080731
  7. AMLODIPINE [Concomitant]
     Dosage: 5 MG, ONE INTAKE IN THE EVENING
     Dates: start: 20070220
  8. RAMIPRIL [Concomitant]
     Dosage: 5 MG, ONE INTAKE IN THE EVENING
     Dates: start: 20080808
  9. LEVOTHYROXINE SODIUM [Concomitant]
     Dosage: 75 MG, ONE INTAKE IN THE MORNING
     Dates: start: 20080724
  10. FENTANYL [Concomitant]
     Dosage: 1 EVERY 72 HOURS
     Dates: start: 20080722
  11. DELIX PLUS [Concomitant]
     Dosage: 5/25 MG, ONE INTAKE IN THE MORNING
     Dates: start: 20080808
  12. BELOC ZOK [Concomitant]
     Dosage: 47.5 MG,1 INTAKE IN THE MORNING,1 IN THE EVENING
     Dates: start: 20080811
  13. DIMENHYDRINATE [Concomitant]
     Dosage: 150 MG AT MORNING, MIDDAY, EVENING
     Dates: start: 20080811
  14. OMEP [Concomitant]
     Dosage: 40 MG, ONE INTAKE IN THE MORNING
     Dates: start: 20080814
  15. HALDOL [Concomitant]
     Dosage: 5 DROPS AT MORNING, MIDDAY, EVENING
     Dates: start: 20080724

REACTIONS (3)
  - FALL [None]
  - OVERDOSE [None]
  - VERTIGO [None]
